FAERS Safety Report 19709765 (Version 1)
Quarter: 2021Q3

REPORT INFORMATION
  Report Type: Spontaneous
  Country: IT (occurrence: IT)
  Receive Date: 20210816
  Receipt Date: 20210816
  Transmission Date: 20211014
  Serious: Yes (Other)
  Sender: FDA-Public Use
  Company Number: IT-PFIZER INC-2052391

PATIENT
  Sex: Male

DRUGS (4)
  1. VINCRISTINE [Concomitant]
     Active Substance: VINCRISTINE
     Indication: GLIOMA
     Dosage: NOT REPORTED
  2. DESMOPRESSIN [Concomitant]
     Active Substance: DESMOPRESSIN
     Indication: DIABETES INSIPIDUS
     Dosage: NOT REPORTED
  3. CARBOPLATIN. [Suspect]
     Active Substance: CARBOPLATIN
     Indication: DIABETES INSIPIDUS
     Dosage: 36.6 MG/KG, FREQ: TOTAL
  4. ETOPOSIDE. [Concomitant]
     Active Substance: ETOPOSIDE
     Indication: GLIOMA
     Dosage: NOT REPORTED

REACTIONS (2)
  - Haematotoxicity [Unknown]
  - Ileus paralytic [Unknown]
